FAERS Safety Report 5269472-7 (Version None)
Quarter: 2007Q1

REPORT INFORMATION
  Report Type: 
  Country: None (occurrence: None)
  Receive Date: 20070320
  Receipt Date: 20070307
  Transmission Date: 20070707
  Serious: Yes (Hospitalization, Other)
  Sender: FDA-Public Use
  Company Number: US-ELI_LILLY_AND_COMPANY-US200605006310

PATIENT
  Age: 52 Year
  Sex: Male
  Weight: 111.11 kg

DRUGS (5)
  1. ZYPREXA [Suspect]
     Indication: NERVOUSNESS
     Dosage: 2.5 MG, UNK
     Dates: start: 20020101
  2. ZYPREXA [Suspect]
     Dosage: 5 MG, UNK
  3. ZYPREXA [Suspect]
     Dosage: 7.5 MG, UNK
  4. ZYPREXA [Suspect]
     Dosage: 10 MG, UNK
     Dates: end: 20060130
  5. REMERON [Concomitant]
     Dosage: UNK, UNK
     Dates: start: 20020101

REACTIONS (7)
  - BLOOD CHOLESTEROL ABNORMAL [None]
  - CEREBROVASCULAR DISORDER [None]
  - DIABETES MELLITUS [None]
  - EMOTIONAL DISTRESS [None]
  - METABOLIC DISORDER [None]
  - MYOCARDIAL INFARCTION [None]
  - THROMBOSIS [None]
